FAERS Safety Report 25638250 (Version 2)
Quarter: 2025Q3

REPORT INFORMATION
  Report Type: Spontaneous
  Country: EU (occurrence: EU)
  Receive Date: 20250804
  Receipt Date: 20250808
  Transmission Date: 20251021
  Serious: Yes (Other)
  Sender: AUROBINDO
  Company Number: EU-AUROBINDO-AUR-APL-2025-035683

PATIENT
  Age: 77 Year
  Sex: Male

DRUGS (2)
  1. CEFTRIAXONE [Suspect]
     Active Substance: CEFTRIAXONE
     Indication: Pneumonia
     Route: 065
  2. AZITHROMYCIN [Suspect]
     Active Substance: AZITHROMYCIN
     Indication: Pneumonia
     Route: 065

REACTIONS (9)
  - Drug reaction with eosinophilia and systemic symptoms [Unknown]
  - Staphylococcal scalded skin syndrome [Unknown]
  - Superior vena cava syndrome [Unknown]
  - Dermatomyositis [Unknown]
  - Eosinophilia [Unknown]
  - Erythema [Unknown]
  - Rash [Unknown]
  - Skin reaction [Recovering/Resolving]
  - Skin exfoliation [Recovering/Resolving]
